FAERS Safety Report 5627742-4 (Version None)
Quarter: 2008Q1

REPORT INFORMATION
  Report Type: 
  Country: None (occurrence: None)
  Receive Date: 20080215
  Receipt Date: 20080211
  Transmission Date: 20080703
  Serious: Yes (Death, Hospitalization)
  Sender: FDA-Public Use
  Company Number: A0683073A

PATIENT
  Age: 60 Year
  Sex: Male
  Weight: 77.3 kg

DRUGS (9)
  1. AVANDIA [Suspect]
     Route: 048
     Dates: start: 20051021
  2. PREDNISONE TAB [Concomitant]
     Dosage: 5MG UNKNOWN
     Dates: start: 20000101
  3. DIABETA [Concomitant]
     Dosage: 5MG TWICE PER DAY
     Dates: start: 20000101
  4. PRINIVIL [Concomitant]
     Dates: start: 20000101
  5. HYDROCHLOROTHIAZIDE [Concomitant]
     Dosage: 25MG UNKNOWN
     Dates: start: 20000101
  6. ANSAID [Concomitant]
     Dates: start: 20000101
  7. NORVASC [Concomitant]
     Dates: start: 20000101
  8. METFORMIN HCL [Concomitant]
     Dosage: 750MG TWICE PER DAY
     Dates: start: 20000101
  9. PREVACID [Concomitant]
     Dates: start: 20000101

REACTIONS (4)
  - CARDIAC DISORDER [None]
  - CARDIAC FAILURE CONGESTIVE [None]
  - DYSPNOEA EXERTIONAL [None]
  - MYOCARDIAL INFARCTION [None]
